FAERS Safety Report 9891684 (Version 3)
Quarter: 2014Q1

REPORT INFORMATION
  Report Type: Report from Study
  Country: TR (occurrence: TR)
  Receive Date: 20140212
  Receipt Date: 20140224
  Transmission Date: 20141002
  Serious: Yes (Hospitalization, Other)
  Sender: FDA-Public Use
  Company Number: PHHY2014TR005738

PATIENT
  Age: 4 Year
  Sex: Male
  Weight: 13 kg

DRUGS (3)
  1. EXJADE [Suspect]
     Indication: CONGENITAL APLASTIC ANAEMIA
     Dosage: 250 MG, DAILY
     Route: 048
     Dates: start: 201303
  2. FOLBIOL [Concomitant]
     Indication: ANAEMIA
     Dosage: 5 MG, UNK
  3. ZINC O [Concomitant]
     Indication: ANAEMIA
     Dosage: UNK (1 SPOON, DAILY)

REACTIONS (5)
  - Pneumonia [Recovered/Resolved]
  - Infection [Recovered/Resolved]
  - Lung infiltration [Recovered/Resolved]
  - Serum ferritin increased [Recovered/Resolved]
  - Hepatic enzyme increased [Recovered/Resolved]
